FAERS Safety Report 8916510 (Version 2)
Quarter: 2013Q3

REPORT INFORMATION
  Report Type: Spontaneous
  Country: JP (occurrence: JP)
  Receive Date: 20121120
  Receipt Date: 20130723
  Transmission Date: 20140515
  Serious: Yes (Hospitalization, Other)
  Sender: FDA-Public Use
  Company Number: JP-SANOFI-AVENTIS-2012SA081972

PATIENT
  Age: 58 Year
  Sex: Male
  Weight: 45.4 kg

DRUGS (21)
  1. AMARYL [Suspect]
     Route: 048
     Dates: start: 20120626, end: 20120704
  2. AMARYL [Suspect]
     Route: 048
     Dates: start: 20120705, end: 20120711
  3. AMARYL [Suspect]
     Route: 048
     Dates: start: 20120712, end: 20120823
  4. RISPERDAL [Suspect]
     Indication: IRRITABILITY
     Route: 048
     Dates: start: 20120615, end: 20120617
  5. RISPERDAL [Suspect]
     Indication: IRRITABILITY
     Route: 048
     Dates: start: 20120618, end: 20120705
  6. RISPERDAL [Suspect]
     Indication: IRRITABILITY
     Route: 048
     Dates: start: 201207, end: 20120903
  7. INVESTIGATIONAL DRUG [Suspect]
     Indication: DEMENTIA ALZHEIMER^S TYPE
     Route: 030
     Dates: start: 20111021, end: 20111021
  8. INVESTIGATIONAL DRUG [Suspect]
     Indication: DEMENTIA ALZHEIMER^S TYPE
     Route: 030
     Dates: start: 20120420, end: 20120420
  9. SAIREI-TO [Suspect]
     Indication: SUBDURAL HAEMATOMA
     Route: 048
     Dates: start: 20120630, end: 20120816
  10. SITAGLIPTIN PHOSPHATE [Suspect]
     Indication: DIABETES MELLITUS
     Route: 048
     Dates: start: 20120620, end: 20120823
  11. ARICEPT [Concomitant]
     Dates: start: 20090929, end: 20120904
  12. BASEN [Concomitant]
     Dates: start: 200904
  13. BASEN [Concomitant]
     Dates: start: 20120609, end: 20120823
  14. MAGMITT [Concomitant]
     Route: 065
     Dates: start: 20120808, end: 20130222
  15. LAXOBERON [Concomitant]
     Route: 065
     Dates: start: 20120608
  16. TELEMINSOFT [Concomitant]
     Route: 065
     Dates: start: 20120729
  17. SODIUM GUALENATE [Concomitant]
     Route: 065
     Dates: start: 20121010
  18. YOKUKAN-SAN [Concomitant]
     Route: 065
     Dates: start: 20121105, end: 20130223
  19. LANDSEN [Concomitant]
     Route: 065
     Dates: start: 20121206, end: 20130223
  20. GLYCERIN [Concomitant]
     Route: 065
     Dates: start: 20120627
  21. NIZORAL [Concomitant]
     Route: 065
     Dates: start: 20120725, end: 20120810

REACTIONS (8)
  - Altered state of consciousness [Recovered/Resolved]
  - Subdural haematoma [Recovered/Resolved]
  - Brain oedema [Recovered/Resolved]
  - Cerebral atrophy [Not Recovered/Not Resolved]
  - Cerebral ventricle dilatation [Not Recovered/Not Resolved]
  - Normal pressure hydrocephalus [Not Recovered/Not Resolved]
  - Hepatic function abnormal [Recovered/Resolved]
  - Sepsis [Recovered/Resolved]
